FAERS Safety Report 14379811 (Version 1)
Quarter: 2018Q1

REPORT INFORMATION
  Report Type: Spontaneous
  Country: US (occurrence: US)
  Receive Date: 20180111
  Receipt Date: 20180111
  Transmission Date: 20180509
  Serious: Yes (Hospitalization, Other)
  Sender: FDA-Public Use
  Company Number: None

PATIENT
  Age: 34 Year
  Sex: Female
  Weight: 90.72 kg

DRUGS (1)
  1. MIRENA [Suspect]
     Active Substance: LEVONORGESTREL
     Dates: start: 20161013, end: 20161108

REACTIONS (5)
  - Embedded device [None]
  - Menstruation irregular [None]
  - Dysmenorrhoea [None]
  - Oligomenorrhoea [None]
  - Complication of device removal [None]

NARRATIVE: CASE EVENT DATE: 20161008
